FAERS Safety Report 17137152 (Version 3)
Quarter: 2019Q4

REPORT INFORMATION
  Report Type: Report from Study
  Country: US (occurrence: US)
  Receive Date: 20191210
  Receipt Date: 20191224
  Transmission Date: 20200122
  Serious: Yes (Hospitalization, Other)
  Sender: FDA-Public Use
  Company Number: US-BRISTOL-MYERS SQUIBB COMPANY-BMS-2019-117802

PATIENT
  Age: 53 Year
  Sex: Male

DRUGS (11)
  1. NIVOLUMAB [Suspect]
     Active Substance: NIVOLUMAB
     Indication: NEOPLASM MALIGNANT
     Dosage: 360 MILLIGRAM, Q3WK
     Route: 042
     Dates: start: 20191104, end: 20191104
  2. BUTALBITAL, ACETAMINOPHEN, AND CAFFEINE [Concomitant]
     Active Substance: ACETAMINOPHEN\BUTALBITAL\CAFFEINE
     Indication: MIGRAINE
     Dosage: 1 DOSAGE FORM, Q6H PRN
     Route: 048
     Dates: start: 20190329
  3. MULTIVITAMIN (16) [Concomitant]
     Active Substance: VITAMINS
     Indication: PRODUCT USED FOR UNKNOWN INDICATION
     Dosage: 1 DOSAGE FORM, QD
     Route: 048
  4. FOLIC ACID. [Concomitant]
     Active Substance: FOLIC ACID
     Indication: METASTATIC NEOPLASM
     Dosage: 1 MILLIGRAM, QD
     Route: 048
     Dates: start: 20190514
  5. LIDOCAINE AND PRILOCAINE [Concomitant]
     Active Substance: LIDOCAINE\PRILOCAINE
     Indication: METASTATIC NEOPLASM
     Dosage: 1 DOSAGE FORM, PRN
     Route: 061
     Dates: start: 20190301
  6. BEMPEGALDESLEUKIN [Suspect]
     Active Substance: BEMPEGALDESLEUKIN
     Indication: NEOPLASM MALIGNANT
     Dosage: 0.06 MILLIGRAM/KILOGRAM, Q3WK
     Route: 042
     Dates: start: 20191104, end: 20191104
  7. ACETAMINOPHEN. [Concomitant]
     Active Substance: ACETAMINOPHEN
     Indication: PAIN
     Dosage: 650 MILLIGRAM, Q4H PRN
     Route: 048
     Dates: start: 20190104
  8. SUMATRIPTAN. [Concomitant]
     Active Substance: SUMATRIPTAN
     Indication: MIGRAINE
     Dosage: 25 MILLIGRAM, PRN EVERY 2 HOURS
     Route: 048
     Dates: start: 20190329
  9. LEVOTHYROXINE. [Concomitant]
     Active Substance: LEVOTHYROXINE
     Indication: PRODUCT USED FOR UNKNOWN INDICATION
     Dosage: 75 MICROGRAM, QD
     Route: 048
     Dates: start: 20191104
  10. LEVETIRACETAM. [Concomitant]
     Active Substance: LEVETIRACETAM
     Indication: PRODUCT USED FOR UNKNOWN INDICATION
     Dosage: 2000 MILLIGRAM, BID
     Route: 048
     Dates: start: 20190905
  11. NICOTINE. [Concomitant]
     Active Substance: NICOTINE
     Indication: PRODUCT USED FOR UNKNOWN INDICATION
     Dosage: 14 MILLIGRAM, QD
     Route: 062
     Dates: start: 20190104

REACTIONS (1)
  - Vasogenic cerebral oedema [Recovered/Resolved]

NARRATIVE: CASE EVENT DATE: 20191125
